FAERS Safety Report 17588407 (Version 2)
Quarter: 2020Q2

REPORT INFORMATION
  Report Type: Spontaneous
  Country: US (occurrence: US)
  Receive Date: 20200326
  Receipt Date: 20200417
  Transmission Date: 20200713
  Serious: No
  Sender: FDA-Public Use
  Company Number: US-009507513-2003USA006537

PATIENT
  Sex: Male

DRUGS (1)
  1. ASMANEX [Suspect]
     Active Substance: MOMETASONE FUROATE
     Dosage: 2 TIMES PER DAY
     Route: 055
     Dates: start: 20200313

REACTIONS (3)
  - Product quality issue [Unknown]
  - Chest discomfort [Unknown]
  - Poor quality device used [Unknown]

NARRATIVE: CASE EVENT DATE: 202003
